FAERS Safety Report 14097582 (Version 1)
Quarter: 2017Q4

REPORT INFORMATION
  Report Type: Spontaneous
  Country: US (occurrence: US)
  Receive Date: 20171016
  Receipt Date: 20171016
  Transmission Date: 20180321
  Serious: No
  Sender: FDA-Public Use
  Company Number: US-AMGEN-USASP2016184339

PATIENT
  Age: 63 Year
  Sex: Female
  Weight: 58.96 kg

DRUGS (3)
  1. PROLIA [Suspect]
     Active Substance: DENOSUMAB
     Indication: OSTEOPOROSIS POSTMENOPAUSAL
     Dosage: UNK
     Route: 065
  2. LORAZEPAM. [Concomitant]
     Active Substance: LORAZEPAM
     Dosage: UNK UNK, QD
  3. GABAPENTIN. [Concomitant]
     Active Substance: GABAPENTIN
     Dosage: UNK UNK, QD

REACTIONS (8)
  - Low density lipoprotein increased [Unknown]
  - Blood triglycerides increased [Recovering/Resolving]
  - Weight increased [Unknown]
  - Abdominal distension [Unknown]
  - Blood cholesterol increased [Unknown]
  - Back pain [Unknown]
  - Drug dose omission [Unknown]
  - Central obesity [Unknown]

NARRATIVE: CASE EVENT DATE: 2016
